FAERS Safety Report 4699230-3 (Version None)
Quarter: 2005Q2

REPORT INFORMATION
  Report Type: 
  Country: None (occurrence: None)
  Receive Date: 20050622
  Receipt Date: 20050602
  Transmission Date: 20051028
  Serious: Yes (Other)
  Sender: FDA-Public Use
  Company Number: 2005036572

PATIENT
  Age: 33 Year
  Sex: Female
  Weight: 140 kg

DRUGS (1)
  1. DEPO-PROVERA [Suspect]
     Indication: CONTRACEPTION
     Dosage: 150 MG (150 MG, FIRST INJECTION/ TRIMESTRAL), INTRAMUSCULAR
     Route: 030
     Dates: start: 20000101, end: 20000101

REACTIONS (7)
  - ABDOMINAL PAIN [None]
  - BACK PAIN [None]
  - BREAST PAIN [None]
  - CERVIX CARCINOMA [None]
  - PELVIC PAIN [None]
  - POST COITAL BLEEDING [None]
  - VAGINAL DISCHARGE [None]
